FAERS Safety Report 5955091-3 (Version None)
Quarter: 2008Q4

REPORT INFORMATION
  Report Type: 
  Country: None (occurrence: None)
  Receive Date: 20081117
  Receipt Date: 20081114
  Transmission Date: 20090506
  Serious: Yes (Other)
  Sender: FDA-Public Use
  Company Number: D0059465A

PATIENT
  Age: 25 Year
  Sex: Female

DRUGS (1)
  1. CEFUHEXAL [Suspect]
     Indication: BRONCHITIS
     Route: 048

REACTIONS (2)
  - HYPNAGOGIC HALLUCINATION [None]
  - SLEEP ATTACKS [None]
